FAERS Safety Report 24871336 (Version 1)
Quarter: 2025Q1

REPORT INFORMATION
  Report Type: Spontaneous
  Country: JP (occurrence: JP)
  Receive Date: 20250122
  Receipt Date: 20250122
  Transmission Date: 20250409
  Serious: Yes (Death, Other)
  Sender: CHEPLAPHARM
  Company Number: JP-CP_KK-2025JP002618

PATIENT
  Age: 64 Year
  Sex: Male

DRUGS (2)
  1. OLANZAPINE [Suspect]
     Active Substance: OLANZAPINE
     Indication: Product used for unknown indication
     Dosage: DAILY DOSE: 5 MILLIGRAM
  2. RISPERIDONE [Suspect]
     Active Substance: RISPERIDONE
     Indication: Neurosyphilis
     Dosage: DAILY DOSE: 10 MILLIGRAM

REACTIONS (9)
  - Death [Fatal]
  - Pneumonia [Fatal]
  - Hypoglycaemia [Fatal]
  - Altered state of consciousness [Not Recovered/Not Resolved]
  - General physical health deterioration [Fatal]
  - Communication disorder [Fatal]
  - Decreased activity [Not Recovered/Not Resolved]
  - Bedridden [Fatal]
  - Soliloquy [Fatal]
